FAERS Safety Report 7989502-9 (Version None)
Quarter: 2011Q4

REPORT INFORMATION
  Report Type: 
  Country: None (occurrence: None)
  Receive Date: 20111219
  Receipt Date: 20101117
  Transmission Date: 20120403
  Serious: No
  Sender: FDA-Public Use
  Company Number: US-ASTRAZENECA-2010SE54944

PATIENT
  Age: 61 Year
  Sex: Male
  Weight: 80.3 kg

DRUGS (9)
  1. XANAX [Concomitant]
  2. CRESTOR [Suspect]
     Indication: HYPERCHOLESTEROLAEMIA
     Route: 048
     Dates: start: 20101112
  3. VITAMIN TAB [Concomitant]
  4. NORVASC [Concomitant]
  5. ASPIRIN [Concomitant]
  6. FLOMAX [Concomitant]
  7. PEPCID [Concomitant]
  8. ZYRTEC [Concomitant]
  9. DYAZIDE [Concomitant]

REACTIONS (2)
  - FATIGUE [None]
  - PALPITATIONS [None]
